FAERS Safety Report 18034464 (Version 7)
Quarter: 2021Q1

REPORT INFORMATION
  Report Type: Spontaneous
  Country: US (occurrence: US)
  Receive Date: 20200716
  Receipt Date: 20210126
  Transmission Date: 20210419
  Serious: No
  Sender: FDA-Public Use
  Company Number: US-PFIZER INC-2020136710

PATIENT
  Age: 67 Year
  Sex: Female
  Weight: 58.97 kg

DRUGS (5)
  1. CHANTIX [Suspect]
     Active Substance: VARENICLINE TARTRATE
     Indication: SMOKING CESSATION THERAPY
     Dosage: UNK
     Dates: start: 2013
  2. CHANTIX [Suspect]
     Active Substance: VARENICLINE TARTRATE
     Dosage: 0.5 MG, TWICE DAILY FOR 3 DAYS
     Route: 048
  3. CHANTIX [Suspect]
     Active Substance: VARENICLINE TARTRATE
     Dosage: UNK
     Dates: start: 2016
  4. CHANTIX [Suspect]
     Active Substance: VARENICLINE TARTRATE
     Dosage: 0.5 MG, ONCE DAILY FOR 3 DAYS
     Route: 048
  5. CHANTIX [Suspect]
     Active Substance: VARENICLINE TARTRATE
     Dosage: 1 MG, TWICE DAILY
     Route: 048
     Dates: start: 202007

REACTIONS (7)
  - Off label use [Unknown]
  - Product use issue [Unknown]
  - Hypersensitivity [Unknown]
  - Abdominal symptom [Recovered/Resolved]
  - Nightmare [Unknown]
  - Intentional product misuse [Unknown]
  - Dry throat [Unknown]

NARRATIVE: CASE EVENT DATE: 2020
